FAERS Safety Report 8694736 (Version 2)
Quarter: 2013Q4

REPORT INFORMATION
  Report Type: Spontaneous
  Country: FR (occurrence: FR)
  Receive Date: 20120731
  Receipt Date: 20131105
  Transmission Date: 20140711
  Serious: Yes (Other)
  Sender: FDA-Public Use
  Company Number: FR-MSD-1207FRA011774

PATIENT
  Age: 77 Year
  Sex: Female
  Weight: 80 kg

DRUGS (6)
  1. TIENAM 500MG/500MG, POUDRE POUR PERFUSION [Suspect]
     Dosage: 1 G, TID
     Route: 042
     Dates: start: 20120229, end: 20120320
  2. GENTAMICIN [Suspect]
     Indication: OSTEOMYELITIS
     Dosage: 240 MG, QD
     Route: 042
     Dates: start: 20120305, end: 20120320
  3. VANCOMYCIN MYLAN [Suspect]
     Indication: OSTEOMYELITIS
     Dosage: 1 G, BID
     Route: 042
     Dates: start: 20120305, end: 20120320
  4. SPASFON [Concomitant]
     Route: 048
  5. DEBRIDAT [Concomitant]
     Route: 048
  6. TIORFAN [Concomitant]
     Indication: OSTEOMYELITIS
     Route: 048

REACTIONS (1)
  - Cholestasis [Recovered/Resolved]
